FAERS Safety Report 18810573 (Version 1)
Quarter: 2021Q1

REPORT INFORMATION
  Report Type: Spontaneous
  Country: CN (occurrence: CN)
  Receive Date: 20210129
  Receipt Date: 20210129
  Transmission Date: 20210419
  Serious: Yes (Other)
  Sender: FDA-Public Use
  Company Number: CN-PURDUE-USA-2021-0201564

PATIENT
  Age: 81 Year
  Sex: Female
  Weight: 52 kg

DRUGS (3)
  1. PALONOSETRON HYDROCHLORIDE. [Concomitant]
     Active Substance: PALONOSETRON HYDROCHLORIDE
     Indication: ANTIEMETIC SUPPORTIVE CARE
     Dosage: 5 MG, Q1H (REPORTED ALSO AS EVERY 24 HOURS)
     Route: 065
     Dates: start: 20181031, end: 20181031
  2. NORSPAN [Suspect]
     Active Substance: BUPRENORPHINE
     Indication: POSTOPERATIVE ANALGESIA
     Dosage: 5 MG, WEEKLY (STRENGTH 5 MG)
     Route: 062
     Dates: start: 20181031, end: 20181031
  3. HYDROMORPHONE HYDROCHLORIDE. [Suspect]
     Active Substance: HYDROMORPHONE HYDROCHLORIDE
     Indication: POSTOPERATIVE ANALGESIA
     Dosage: 0.08 MG, Q1H
     Route: 065
     Dates: start: 20181031, end: 20181031

REACTIONS (6)
  - Affect lability [Recovering/Resolving]
  - Delirium [Recovering/Resolving]
  - Patient uncooperative [Recovering/Resolving]
  - Emotional disorder [Recovering/Resolving]
  - Disorientation [Recovering/Resolving]
  - Agitation [Recovering/Resolving]

NARRATIVE: CASE EVENT DATE: 20181031
